FAERS Safety Report 20407415 (Version 1)
Quarter: 2022Q1

REPORT INFORMATION
  Report Type: Spontaneous
  Country: CN (occurrence: CN)
  Receive Date: 20220131
  Receipt Date: 20220131
  Transmission Date: 20220424
  Serious: Yes (Hospitalization, Other)
  Sender: FDA-Public Use
  Company Number: CN-PFIZER INC-202200123683

PATIENT
  Age: 5 Year
  Sex: Male
  Weight: 20 kg

DRUGS (2)
  1. METHOTREXATE [Suspect]
     Active Substance: METHOTREXATE
     Indication: Acute lymphocytic leukaemia
     Dosage: 0.9 MG, 1X/DAY
     Route: 041
     Dates: start: 20211107, end: 20211108
  2. SODIUM CHLORIDE [Suspect]
     Active Substance: SODIUM CHLORIDE
     Indication: Vehicle solution use
     Dosage: 150 ML, 1X/DAY
     Route: 041
     Dates: start: 20211107, end: 20211108

REACTIONS (3)
  - Anal ulcer [Recovered/Resolved]
  - Mouth ulceration [Recovered/Resolved]
  - Lip ulceration [Recovered/Resolved]

NARRATIVE: CASE EVENT DATE: 20211114
